FAERS Safety Report 8088891-7 (Version None)
Quarter: 2012Q1

REPORT INFORMATION
  Report Type: 
  Country: None (occurrence: None)
  Receive Date: 20120128
  Receipt Date: 20110413
  Transmission Date: 20120608
  Serious: No
  Sender: FDA-Public Use
  Company Number: US-ABBOTT-11P-163-0718853-00

PATIENT
  Age: 38 Year
  Sex: Male

DRUGS (4)
  1. CITALOPRAM [Concomitant]
     Indication: ANXIETY
  2. METHOTREXATE [Concomitant]
     Indication: PRODUCT USED FOR UNKNOWN INDICATION
     Dosage: 4 DOSAGE FORMS ON MONDAY AND TUESDAY
  3. FOLIC ACID [Concomitant]
     Indication: PRODUCT USED FOR UNKNOWN INDICATION
  4. HUMIRA [Suspect]
     Indication: RHEUMATOID ARTHRITIS
     Dates: start: 20100401

REACTIONS (3)
  - RHEUMATOID ARTHRITIS [None]
  - ARTHRALGIA [None]
  - PAIN IN EXTREMITY [None]
